FAERS Safety Report 6833738-7 (Version None)
Quarter: 2010Q3

REPORT INFORMATION
  Report Type: 
  Country: None (occurrence: None)
  Receive Date: 20100712
  Receipt Date: 20070401
  Transmission Date: 20110219
  Serious: No
  Sender: FDA-Public Use
  Company Number: US-PFIZER INC-2007027304

PATIENT
  Age: 32 Year
  Sex: Female
  Weight: 77.11 kg

DRUGS (2)
  1. CHANTIX [Suspect]
     Dates: start: 20070331
  2. CLARITIN [Suspect]
     Indication: HYPERSENSITIVITY

REACTIONS (3)
  - DRUG DISPENSING ERROR [None]
  - NO ADVERSE EVENT [None]
  - WRONG DRUG ADMINISTERED [None]
